FAERS Safety Report 7212151-7 (Version None)
Quarter: 2011Q1

REPORT INFORMATION
  Report Type: 
  Country: None (occurrence: None)
  Receive Date: 20110106
  Receipt Date: 20101227
  Transmission Date: 20110831
  Serious: Yes (Other)
  Sender: FDA-Public Use
  Company Number: CH-BAYER-2010-007653

PATIENT
  Age: 39 Year
  Sex: Female
  Weight: 60 kg

DRUGS (3)
  1. CIPRALEX [Suspect]
     Indication: DEPRESSION
  2. MIRENA [Suspect]
     Dosage: UNK
     Route: 015
     Dates: start: 20030402, end: 20090209
  3. CIPRALEX [Suspect]
     Indication: BIPOLAR DISORDER
     Dosage: DAILY DOSE 40 MG
     Route: 048
     Dates: start: 20050101

REACTIONS (2)
  - PREMATURE MENOPAUSE [None]
  - AMENORRHOEA [None]
